FAERS Safety Report 6691390-8 (Version None)
Quarter: 2010Q2

REPORT INFORMATION
  Report Type: 
  Country: None (occurrence: None)
  Receive Date: 20100422
  Receipt Date: 20100414
  Transmission Date: 20101027
  Serious: Yes (Hospitalization, Other)
  Sender: FDA-Public Use
  Company Number: US-ASTRAZENECA-2007UW17003

PATIENT
  Age: 654 Month
  Sex: Male
  Weight: 84.8 kg

DRUGS (22)
  1. SEROQUEL [Suspect]
     Indication: DEPRESSION
     Route: 048
     Dates: start: 20031016
  2. SEROQUEL [Suspect]
     Indication: AFFECTIVE DISORDER
     Route: 048
     Dates: start: 20031016
  3. SEROQUEL [Suspect]
     Dosage: 50-100 MG
     Route: 048
     Dates: start: 20040430
  4. SEROQUEL [Suspect]
     Dosage: 50-100 MG
     Route: 048
     Dates: start: 20040430
  5. SEROQUEL [Suspect]
     Dosage: TAKE ONE HALF TABLET DAILY AT BEDTIME
     Route: 048
     Dates: start: 20080611
  6. SEROQUEL [Suspect]
     Dosage: TAKE ONE HALF TABLET DAILY AT BEDTIME
     Route: 048
     Dates: start: 20080611
  7. WELLBUTRIN [Concomitant]
     Route: 048
  8. REMERON [Concomitant]
     Route: 048
     Dates: end: 20030101
  9. TOPROL-XL [Concomitant]
     Route: 048
  10. LIPITOR [Concomitant]
     Route: 048
  11. AVANDIA [Concomitant]
     Route: 048
     Dates: end: 20040107
  12. IBUPROFEN [Concomitant]
     Route: 048
  13. IBUPROFEN [Concomitant]
     Route: 048
  14. NIACIN [Concomitant]
     Route: 048
  15. PLAVIX [Concomitant]
     Route: 048
     Dates: start: 20050322
  16. LISINOPRIL [Concomitant]
     Route: 048
  17. NITROGLYCERIN [Concomitant]
     Route: 060
  18. MIRTAZAPINE [Concomitant]
     Indication: AFFECTIVE DISORDER
     Route: 048
  19. OMEPRAZOLE [Concomitant]
     Route: 048
  20. BETAMETHASONE DIPROPIONATE [Concomitant]
  21. LORAZEPAM [Concomitant]
  22. PRAVASTATIN [Concomitant]
     Indication: BLOOD CHOLESTEROL
     Route: 048
     Dates: start: 20080530

REACTIONS (9)
  - ARTERIOSCLEROSIS CORONARY ARTERY [None]
  - CARDIOVASCULAR DISORDER [None]
  - CELLULITIS [None]
  - CORONARY ARTERY DISEASE [None]
  - DERMAL CYST [None]
  - DIABETES MELLITUS [None]
  - LEFT VENTRICULAR DYSFUNCTION [None]
  - MYOCARDIAL INFARCTION [None]
  - TYPE 2 DIABETES MELLITUS [None]
